FAERS Safety Report 10022338 (Version 4)
Quarter: 2014Q2

REPORT INFORMATION
  Report Type: Spontaneous
  Country: US (occurrence: US)
  Receive Date: 20140319
  Receipt Date: 20140624
  Transmission Date: 20141212
  Serious: Yes (Death, Hospitalization, Disabling, Other)
  Sender: FDA-Public Use
  Company Number: US-009507513-1403USA008988

PATIENT
  Sex: Male
  Weight: 72.56 kg

DRUGS (1)
  1. JANUVIA [Suspect]
     Indication: TYPE 2 DIABETES MELLITUS
     Dosage: 100 MG, QAM
     Route: 048
     Dates: start: 20100307

REACTIONS (53)
  - Pancreatic carcinoma metastatic [Fatal]
  - Pancreaticoduodenectomy [Unknown]
  - Hyperglycaemic hyperosmolar nonketotic syndrome [Recovering/Resolving]
  - Impaired gastric emptying [Unknown]
  - Abdominal abscess [Unknown]
  - Gastric ulcer [Unknown]
  - Cachexia [Not Recovered/Not Resolved]
  - Atrial fibrillation [Unknown]
  - Diabetic coma [Unknown]
  - Transfusion [Unknown]
  - Ascites [Unknown]
  - Diabetes mellitus inadequate control [Unknown]
  - Thrombocytopenia [Unknown]
  - Pancytopenia [Unknown]
  - Status epilepticus [Unknown]
  - Meningitis [Unknown]
  - Depressed level of consciousness [Unknown]
  - Endotracheal intubation [Unknown]
  - Malnutrition [Unknown]
  - Hypoglycaemia [Unknown]
  - Hypercholesterolaemia [Unknown]
  - Gastrooesophageal reflux disease [Unknown]
  - Anaemia [Unknown]
  - Oedema peripheral [Not Recovered/Not Resolved]
  - Left atrial dilatation [Unknown]
  - Blood albumin decreased [Unknown]
  - Contusion [Unknown]
  - Generalised oedema [Unknown]
  - Arteriosclerosis [Unknown]
  - Chronic obstructive pulmonary disease [Not Recovered/Not Resolved]
  - Tonsillectomy [Unknown]
  - Bicuspid aortic valve [Unknown]
  - Malnutrition [Not Recovered/Not Resolved]
  - Asthenia [Unknown]
  - Benign prostatic hyperplasia [Unknown]
  - Treatment noncompliance [Unknown]
  - Oesophageal disorder [Unknown]
  - Renal cyst [Unknown]
  - Hepatic lesion [Unknown]
  - Gastric dilatation [Unknown]
  - Ascites [Unknown]
  - Anastomotic complication [Unknown]
  - Oedema peripheral [Unknown]
  - Oedema peripheral [Unknown]
  - Decubitus ulcer [Unknown]
  - Electrocardiogram T wave amplitude decreased [Unknown]
  - Troponin I increased [Unknown]
  - Tachycardia [Unknown]
  - Anaemia [Unknown]
  - Overdose [Unknown]
  - Cardiac murmur [Unknown]
  - Constipation [Unknown]
  - Diarrhoea [Not Recovered/Not Resolved]
